FAERS Safety Report 6012874-1 (Version None)
Quarter: 2008Q4

REPORT INFORMATION
  Report Type: 
  Country: None (occurrence: None)
  Receive Date: 20081217
  Receipt Date: 20081201
  Transmission Date: 20090506
  Serious: Yes (Hospitalization)
  Sender: FDA-Public Use
  Company Number: 2008PL000161

PATIENT
  Age: 60 Year
  Sex: Female

DRUGS (8)
  1. LOTRONEX [Suspect]
     Indication: IRRITABLE BOWEL SYNDROME
     Dosage: 0.5 MG;BIW;PO
     Route: 048
     Dates: start: 20081001
  2. ZOCOR [Concomitant]
  3. MAXZIDE [Concomitant]
  4. RELAFEN [Concomitant]
  5. METROGEL [Concomitant]
  6. NULEV [Concomitant]
  7. DARVOCET /00220901/ [Concomitant]
  8. DONNATAL [Concomitant]

REACTIONS (22)
  - ABDOMINAL PAIN LOWER [None]
  - ACIDOSIS [None]
  - ANAEMIA [None]
  - BLOOD ALKALINE PHOSPHATASE INCREASED [None]
  - BLOOD CALCIUM INCREASED [None]
  - BLOOD ELECTROLYTES ABNORMAL [None]
  - CARDIOVASCULAR DISORDER [None]
  - CHANGE OF BOWEL HABIT [None]
  - COLITIS ISCHAEMIC [None]
  - DEHYDRATION [None]
  - DIARRHOEA [None]
  - EPIPLOIC APPENDAGITIS [None]
  - ILEUS PARALYTIC [None]
  - LEUKOCYTOSIS [None]
  - MICTURITION URGENCY [None]
  - MUSCLE SPASMS [None]
  - NAUSEA [None]
  - PAIN [None]
  - PLEURAL EFFUSION [None]
  - PROTEIN TOTAL INCREASED [None]
  - SEPSIS [None]
  - VOMITING [None]
